FAERS Safety Report 8277195-5 (Version None)
Quarter: 2012Q2

REPORT INFORMATION
  Report Type: 
  Country: None (occurrence: None)
  Receive Date: 20120412
  Receipt Date: 20120405
  Transmission Date: 20120825
  Serious: Yes (Hospitalization)
  Sender: FDA-Public Use
  Company Number: US-GLAXOSMITHKLINE-A0789353A

PATIENT
  Age: 63 Year
  Sex: Male

DRUGS (1)
  1. AVANDIA [Suspect]
     Indication: DIABETES MELLITUS
     Dosage: 4U PER DAY
     Route: 048
     Dates: start: 20010101, end: 20070831

REACTIONS (6)
  - MYOCARDIAL INFARCTION [None]
  - CORONARY ARTERY OCCLUSION [None]
  - CORONARY ARTERY STENOSIS [None]
  - POSTOPERATIVE THORACIC PROCEDURE COMPLICATION [None]
  - CARDIAC FAILURE CONGESTIVE [None]
  - ATRIAL FLUTTER [None]
